FAERS Safety Report 11204933 (Version 1)
Quarter: 2015Q2

REPORT INFORMATION
  Report Type: Spontaneous
  Country: US (occurrence: None)
  Receive Date: 20150618
  Receipt Date: 20150618
  Transmission Date: 20150821
  Serious: No
  Sender: FDA-Public Use
  Company Number: None

PATIENT
  Sex: Female

DRUGS (1)
  1. REBIF [Suspect]
     Active Substance: INTERFERON BETA-1A
     Indication: MULTIPLE SCLEROSIS
     Dosage: REBIF 44MCG  3 TIMES A WEEK SUBCUTANEOUSLY
     Route: 058
     Dates: start: 20150523

REACTIONS (2)
  - Herpes zoster [None]
  - Drug dose omission [None]
